FAERS Safety Report 13351175 (Version 1)
Quarter: 2017Q1

REPORT INFORMATION
  Report Type: Report from Study
  Country: US (occurrence: US)
  Receive Date: 20170320
  Receipt Date: 20170320
  Transmission Date: 20170429
  Serious: Yes (Life-Threatening, Other)
  Sender: FDA-Public Use
  Company Number: US-GILEAD-2017-0262481

PATIENT
  Sex: Male

DRUGS (1)
  1. LEDIPASVIR/SOFOSBUVIR [Suspect]
     Active Substance: LEDIPASVIR\SOFOSBUVIR
     Indication: HEPATITIS C
     Route: 065

REACTIONS (4)
  - Drug ineffective [Unknown]
  - Neoplasm [Not Recovered/Not Resolved]
  - Terminal state [Not Recovered/Not Resolved]
  - Hepatitis C [Unknown]
